FAERS Safety Report 14653427 (Version 1)
Quarter: 2018Q1

REPORT INFORMATION
  Report Type: Spontaneous
  Country: IN (occurrence: IN)
  Receive Date: 20180319
  Receipt Date: 20180319
  Transmission Date: 20180509
  Serious: Yes (Life-Threatening, Hospitalization)
  Sender: FDA-Public Use
  Company Number: IN-ACCORD-064404

PATIENT
  Age: 23 Year
  Sex: Female

DRUGS (1)
  1. FUROSEMIDE. [Suspect]
     Active Substance: FUROSEMIDE
     Indication: PROPHYLAXIS

REACTIONS (4)
  - Hypokalaemia [Recovering/Resolving]
  - Quadriplegia [Recovering/Resolving]
  - Acidosis hyperchloraemic [Unknown]
  - Hypernatraemia [Unknown]
